FAERS Safety Report 7660696-8 (Version None)
Quarter: 2011Q3

REPORT INFORMATION
  Report Type: 
  Country: None (occurrence: None)
  Receive Date: 20110805
  Receipt Date: 20101011
  Transmission Date: 20111222
  Serious: No
  Sender: FDA-Public Use
  Company Number: US-ABBOTT-10P-163-0677993-00

PATIENT
  Sex: Female
  Weight: 82.628 kg

DRUGS (8)
  1. ZOLOFT [Concomitant]
     Indication: ANXIETY
  2. NEXIUM [Concomitant]
     Indication: BARRETT'S OESOPHAGUS
  3. DARVOCET [Concomitant]
     Indication: BACK PAIN
  4. NOVOLOG [Concomitant]
     Indication: DIABETES MELLITUS
     Dosage: 70/30 IN THE MORNING AND AT BEDTIME
     Route: 058
  5. NIASPAN [Suspect]
     Indication: BLOOD TRIGLYCERIDES
     Dates: start: 20100921
  6. DIAZAPAM [Concomitant]
     Indication: ANXIETY
  7. LEVAMIR [Concomitant]
     Indication: DIABETES MELLITUS
     Dosage: AT BEDTIME
  8. LISINOPRIL [Concomitant]
     Indication: HYPERTENSION

REACTIONS (4)
  - GENERALISED ERYTHEMA [None]
  - FATIGUE [None]
  - FLUSHING [None]
  - SKIN BURNING SENSATION [None]
